FAERS Safety Report 8909622 (Version 2)
Quarter: 2013Q1

REPORT INFORMATION
  Report Type: Spontaneous
  Country: US (occurrence: None)
  Receive Date: 20121109
  Receipt Date: 20121219
  Transmission Date: 20140127
  Serious: Yes (Hospitalization)
  Sender: FDA-Public Use
  Company Number: CRC-12-546

PATIENT
  Age: 51 Year
  Sex: Male

DRUGS (2)
  1. EXTENDED PHENYTOIN SODIUM [Suspect]
     Indication: EPILEPSY
     Dosage: 1 CAP
     Route: 048
     Dates: start: 20120917, end: 201210
  2. UNSPECIFIED INGREDIENT [Concomitant]

REACTIONS (3)
  - Convulsion [None]
  - Cholecystectomy [None]
  - Feeling abnormal [None]
